FAERS Safety Report 19739430 (Version 1)
Quarter: 2021Q3

REPORT INFORMATION
  Report Type: Spontaneous
  Country: US (occurrence: US)
  Receive Date: 20210820
  Receipt Date: 20210820
  Transmission Date: 20211014
  Serious: Yes (Hospitalization)
  Sender: FDA-Public Use
  Company Number: None

PATIENT

DRUGS (2)
  1. DEXTROSE. [Suspect]
     Active Substance: DEXTROSE
  2. DEXTROSE. [Suspect]
     Active Substance: DEXTROSE

REACTIONS (3)
  - Transcription medication error [None]
  - Incorrect dose administered [None]
  - Product dispensing error [None]
